FAERS Safety Report 6443324-9 (Version None)
Quarter: 2009Q4

REPORT INFORMATION
  Report Type: 
  Country: None (occurrence: None)
  Receive Date: 20091113
  Receipt Date: 20091104
  Transmission Date: 20100525
  Serious: Yes (Death)
  Sender: FDA-Public Use
  Company Number: 2009AC000352

PATIENT
  Sex: Female

DRUGS (2)
  1. DIGOXIN [Suspect]
     Dosage: 0.25 MG UNKNOWN PO
     Route: 048
     Dates: start: 20070401, end: 20070801
  2. DIGOXIN [Suspect]
     Dosage: 0.125 MG UNKNOWN PO
     Route: 048
     Dates: start: 20070801

REACTIONS (3)
  - ECONOMIC PROBLEM [None]
  - INJURY [None]
  - SURGERY [None]
